FAERS Safety Report 21589189 (Version 4)
Quarter: 2022Q4

REPORT INFORMATION
  Report Type: Report from Study
  Country: CO (occurrence: CO)
  Receive Date: 20221114
  Receipt Date: 20221227
  Transmission Date: 20230113
  Serious: Yes (Death, Hospitalization, Other)
  Sender: FDA-Public Use
  Company Number: CO-ABBVIE-4196260

PATIENT
  Sex: Female

DRUGS (1)
  1. VENCLEXTA [Suspect]
     Active Substance: VENETOCLAX
     Indication: Acute myeloid leukaemia
     Dosage: FORM STRENGTH 100 MILLIGRAM
     Route: 048
     Dates: start: 20220919, end: 20221109

REACTIONS (8)
  - Death [Fatal]
  - Bacterial infection [Recovering/Resolving]
  - General physical health deterioration [Not Recovered/Not Resolved]
  - Pneumonia [Recovering/Resolving]
  - Platelet count decreased [Unknown]
  - Haemorrhage [Not Recovered/Not Resolved]
  - Platelet disorder [Not Recovered/Not Resolved]
  - Headache [Unknown]

NARRATIVE: CASE EVENT DATE: 20220101
